FAERS Safety Report 8423178-1 (Version None)
Quarter: 2012Q2

REPORT INFORMATION
  Report Type: 
  Country: None (occurrence: None)
  Receive Date: 20120608
  Receipt Date: 20120605
  Transmission Date: 20120825
  Serious: Yes (Other)
  Sender: FDA-Public Use
  Company Number: US-PFIZER INC-2012135044

PATIENT
  Sex: Female
  Weight: 83.9 kg

DRUGS (6)
  1. OMEPRAZOLE [Concomitant]
     Dosage: 40 MG, 1X/DAY
  2. METFORMIN [Concomitant]
     Indication: TYPE 2 DIABETES MELLITUS
     Dosage: 1000 MG, 2X/DAY
     Route: 048
  3. TOVIAZ [Suspect]
     Indication: URINARY INCONTINENCE
  4. GEMFIBROZIL [Concomitant]
     Dosage: 600 MG, 2X/DAY
  5. AMLODIPINE BESYLATE AND BENAZEPRIL HCL [Concomitant]
     Dosage: 5/20 MG DAILY
  6. TOVIAZ [Suspect]
     Indication: HYPERTONIC BLADDER
     Dosage: 4 MG, 1X/DAY
     Dates: start: 20120527, end: 20120605

REACTIONS (4)
  - RASH [None]
  - DRY MOUTH [None]
  - PRURITUS [None]
  - URTICARIA [None]
